FAERS Safety Report 7833934-6 (Version None)
Quarter: 2011Q4

REPORT INFORMATION
  Report Type: 
  Country: None (occurrence: None)
  Receive Date: 20111024
  Receipt Date: 20111010
  Transmission Date: 20120403
  Serious: Yes (Other)
  Sender: FDA-Public Use
  Company Number: GB-ROCHE-624395

PATIENT
  Age: 51 Year
  Sex: Female

DRUGS (8)
  1. WARFARIN SODIUM [Concomitant]
  2. ENALAPRIL MALEATE [Suspect]
     Indication: PRODUCT USED FOR UNKNOWN INDICATION
  3. ATORVASTATIN [Concomitant]
  4. CARVEDILOL [Concomitant]
  5. METFORMIN HCL [Concomitant]
  6. GLICLAZIDE [Concomitant]
  7. FUROSEMIDE [Suspect]
     Indication: PRODUCT USED FOR UNKNOWN INDICATION
  8. ORLISTAT [Suspect]
     Indication: PRODUCT USED FOR UNKNOWN INDICATION
     Route: 065

REACTIONS (5)
  - RENAL IMPAIRMENT [None]
  - GLOMERULAR FILTRATION RATE ABNORMAL [None]
  - RENAL FAILURE ACUTE [None]
  - DIARRHOEA [None]
  - HYPOTENSION [None]
